FAERS Safety Report 5327169-9 (Version None)
Quarter: 2007Q2

REPORT INFORMATION
  Report Type: 
  Country: None (occurrence: None)
  Receive Date: 20070517
  Receipt Date: 20070508
  Transmission Date: 20071010
  Serious: Yes (Hospitalization, Other)
  Sender: FDA-Public Use
  Company Number: US-JNJFOC-20070104291

PATIENT
  Sex: Female
  Weight: 84.37 kg

DRUGS (5)
  1. REMICADE [Suspect]
     Dates: start: 20060712
  2. REMICADE [Suspect]
     Dates: start: 20060712
  3. REMICADE [Suspect]
     Dates: start: 20060712
  4. REMICADE [Suspect]
     Indication: PSORIATIC ARTHROPATHY
     Dates: start: 20060712
  5. LEXAPRO [Concomitant]
     Indication: DEPRESSION

REACTIONS (4)
  - DEPRESSION [None]
  - FALL [None]
  - NEUROPATHY PERIPHERAL [None]
  - RIB FRACTURE [None]
